FAERS Safety Report 7380706-5 (Version None)
Quarter: 2011Q1

REPORT INFORMATION
  Report Type: 
  Country: None (occurrence: None)
  Receive Date: 20110329
  Receipt Date: 20110324
  Transmission Date: 20110831
  Serious: No
  Sender: FDA-Public Use
  Company Number: US-PFIZER INC-2011066503

PATIENT
  Sex: Female

DRUGS (5)
  1. NAPROXEN SODIUM [Suspect]
     Indication: LIMB DISCOMFORT
     Dosage: UNK
  2. ADVIL LIQUI-GELS [Suspect]
     Dosage: UNK
  3. TRIAMCINOLONE [Suspect]
     Dosage: UNK
  4. VOLTAREN [Suspect]
     Indication: BITE
     Dosage: UNK
  5. VOLTAREN [Suspect]
     Indication: OEDEMA MOUTH

REACTIONS (3)
  - URTICARIA [None]
  - DRY SKIN [None]
  - SKIN EXFOLIATION [None]
